FAERS Safety Report 7060986-6 (Version None)
Quarter: 2010Q4

REPORT INFORMATION
  Report Type: 
  Country: None (occurrence: None)
  Receive Date: 20101026
  Receipt Date: 20101014
  Transmission Date: 20110411
  Serious: Yes (Other)
  Sender: FDA-Public Use
  Company Number: US-JNJFOC-20101004611

PATIENT
  Age: 56 Year
  Sex: Male
  Weight: 120.2 kg

DRUGS (17)
  1. STELARA [Suspect]
     Indication: PSORIASIS
     Route: 058
  2. CYMBALTA [Concomitant]
  3. SIMVASTATIN [Concomitant]
  4. OMEPRAZOLE [Concomitant]
  5. LASIX [Concomitant]
  6. TIPERAL [Concomitant]
  7. ROPINIROLE [Concomitant]
  8. ANDROGEL [Concomitant]
  9. IMITREX [Concomitant]
  10. ALEVE (CAPLET) [Concomitant]
  11. ACETAMINOPHEN [Concomitant]
  12. MAXZIDE [Concomitant]
  13. ZOLPIDEM [Concomitant]
  14. LOVAZA [Concomitant]
  15. VITAMIN D [Concomitant]
  16. MULTIPLE VITAMINS [Concomitant]
  17. TOPICAL CREAMS [Concomitant]

REACTIONS (4)
  - BLOOD PRESSURE INCREASED [None]
  - HEADACHE [None]
  - SWELLING FACE [None]
  - VISION BLURRED [None]
